FAERS Safety Report 9195742 (Version 1)
Quarter: 2013Q1

REPORT INFORMATION
  Report Type: Spontaneous
  Country: CA (occurrence: CA)
  Receive Date: 20130328
  Receipt Date: 20130328
  Transmission Date: 20140127
  Serious: Yes (Other)
  Sender: FDA-Public Use
  Company Number: CA-AMGEN-CANSP2013020584

PATIENT
  Age: 73 Year
  Sex: Female
  Weight: 70 kg

DRUGS (1)
  1. PROLIA [Suspect]
     Indication: OSTEOPOROSIS POSTMENOPAUSAL
     Dosage: UNK
     Dates: start: 20110819

REACTIONS (6)
  - Abasia [Unknown]
  - Bone disorder [Unknown]
  - Back pain [Unknown]
  - Asthenia [Unknown]
  - Drug ineffective [Unknown]
  - Pain in extremity [Unknown]
